FAERS Safety Report 20771990 (Version 1)
Quarter: 2022Q2

REPORT INFORMATION
  Report Type: Spontaneous
  Country: US (occurrence: US)
  Receive Date: 20220501
  Receipt Date: 20220501
  Transmission Date: 20220721
  Serious: No
  Sender: FDA-Public Use
  Company Number: US-BoehringerIngelheim-2022-BI-168241

PATIENT
  Age: 82 Year
  Sex: Female

DRUGS (2)
  1. SPIRIVA RESPIMAT [Suspect]
     Active Substance: TIOTROPIUM BROMIDE
     Indication: Chronic obstructive pulmonary disease
     Dates: start: 2017
  2. ALBUTEROL [Concomitant]
     Active Substance: ALBUTEROL
     Indication: Drug therapy
     Dosage: PRN

REACTIONS (3)
  - Off label use [Unknown]
  - Cough [Not Recovered/Not Resolved]
  - Overdose [Unknown]

NARRATIVE: CASE EVENT DATE: 20170101
